FAERS Safety Report 14611004 (Version 2)
Quarter: 2018Q2

REPORT INFORMATION
  Report Type: Spontaneous
  Country: IT (occurrence: IT)
  Receive Date: 20180308
  Receipt Date: 20180411
  Transmission Date: 20180711
  Serious: Yes (Other)
  Sender: FDA-Public Use
  Company Number: IT-CIPLA LTD.-2018IT08636

PATIENT

DRUGS (4)
  1. IRINOTECAN [Suspect]
     Active Substance: IRINOTECAN
     Indication: COLON NEOPLASM
     Dosage: 340 MG, CYCLICAL, CONCENTRATE FOR SOLUTION FOR INFUSION
     Route: 065
     Dates: start: 20161212
  2. FLUOROURACILE AHCL [Suspect]
     Active Substance: FLUOROURACIL
     Indication: COLON NEOPLASM
     Dosage: 4536 MG, CYCLICAL, CONCENTRATE FOR SOLUTION FOR INFUSION
     Route: 042
     Dates: start: 20161212
  3. FLUOROURACILE AHCL [Concomitant]
     Active Substance: FLUOROURACIL
     Indication: INTESTINAL TUBERCULOSIS
     Dosage: 756 MG, UNK
     Route: 040
     Dates: start: 20161212, end: 20170130
  4. CALCIO LEVOFOLINATO [Concomitant]
     Active Substance: LEVOLEUCOVORIN CALCIUM
     Indication: PREMEDICATION
     Dosage: 378 MG, CONCENTRATE FOR SOLUTION FOR INFUSION
     Route: 065
     Dates: start: 20161212, end: 20170130

REACTIONS (2)
  - Asthenia [Not Recovered/Not Resolved]
  - Myalgia [Not Recovered/Not Resolved]

NARRATIVE: CASE EVENT DATE: 20170130
